FAERS Safety Report 4749942-8 (Version None)
Quarter: 2005Q3

REPORT INFORMATION
  Report Type: 
  Country: None (occurrence: None)
  Receive Date: 20050822
  Receipt Date: 20050309
  Transmission Date: 20060218
  Serious: Yes (Hospitalization, Disabling)
  Sender: FDA-Public Use
  Company Number: US-MERCK-0503USA01678

PATIENT
  Age: 53 Year
  Sex: Male
  Weight: 94 kg

DRUGS (23)
  1. PROCHLORPERAZINE [Concomitant]
     Route: 065
     Dates: start: 20030901
  2. TETRACYCLINE [Concomitant]
     Route: 065
  3. CYANOCOBALAMIN [Concomitant]
     Route: 065
  4. ASCORBIC ACID [Concomitant]
     Route: 065
     Dates: start: 19970101
  5. SAW PALMETTO [Concomitant]
     Route: 065
     Dates: start: 19970101
  6. OCUVITE LUTEIN [Concomitant]
     Route: 065
     Dates: start: 19970101
  7. ADVIL [Concomitant]
     Route: 065
     Dates: start: 19930101, end: 20030101
  8. TYLENOL [Concomitant]
     Route: 065
     Dates: start: 19930101, end: 20030101
  9. AMBIEN [Concomitant]
     Route: 065
  10. VIOXX [Suspect]
     Indication: OSTEOARTHRITIS
     Route: 048
     Dates: start: 20000317
  11. VIOXX [Suspect]
     Route: 048
     Dates: start: 20000301, end: 20040901
  12. VIOXX [Suspect]
     Route: 048
     Dates: start: 20000301, end: 20040901
  13. VIOXX [Suspect]
     Route: 048
     Dates: start: 20040304
  14. VIOXX [Suspect]
     Route: 048
     Dates: start: 20000317
  15. CYCLOBENZAPRINE HYDROCHLORIDE [Concomitant]
     Route: 065
     Dates: start: 20000301
  16. FOLTX [Concomitant]
     Route: 065
  17. FROVA [Concomitant]
     Route: 065
  18. NADOLOL [Concomitant]
     Route: 065
  19. NEXIUM [Concomitant]
     Route: 065
  20. PEPCID AC [Concomitant]
     Route: 065
  21. VIOXX [Suspect]
     Route: 048
     Dates: start: 20000301, end: 20040901
  22. VIOXX [Suspect]
     Route: 048
     Dates: start: 20000301, end: 20040901
  23. VIOXX [Suspect]
     Route: 048
     Dates: start: 20040304

REACTIONS (24)
  - ACUTE MYOCARDIAL INFARCTION [None]
  - ADJUSTMENT DISORDER [None]
  - ALCOHOLISM [None]
  - ANGINA UNSTABLE [None]
  - BRONCHITIS ACUTE [None]
  - CHANGE OF BOWEL HABIT [None]
  - CHEST DISCOMFORT [None]
  - CORONARY ARTERY DISEASE [None]
  - CORONARY ARTERY OCCLUSION [None]
  - CORONARY ARTERY STENOSIS [None]
  - DEPRESSION [None]
  - DYSPEPSIA [None]
  - GASTROOESOPHAGEAL REFLUX DISEASE [None]
  - HAEMATOMA [None]
  - HEADACHE [None]
  - HYPERLIPIDAEMIA [None]
  - MIGRAINE [None]
  - NAUSEA [None]
  - NON-CARDIAC CHEST PAIN [None]
  - OESOPHAGEAL SPASM [None]
  - OSTEOARTHRITIS [None]
  - RHINITIS [None]
  - SINUSITIS [None]
  - VEIN DISORDER [None]
